FAERS Safety Report 8047515-5 (Version None)
Quarter: 2012Q1

REPORT INFORMATION
  Report Type: 
  Country: None (occurrence: None)
  Receive Date: 20120116
  Receipt Date: 20120113
  Transmission Date: 20120608
  Serious: No
  Sender: FDA-Public Use
  Company Number: US-BAYER-2012-004409

PATIENT
  Age: 35 Year
  Sex: Female

DRUGS (3)
  1. BETASERON [Suspect]
     Dosage: 0.25 MG, UNK
     Route: 058
  2. XYZAL [Concomitant]
     Dosage: 5 MG, UNK
  3. ZOLOFT [Concomitant]
     Dosage: 25 MG, UNK

REACTIONS (1)
  - ALOPECIA [None]
